FAERS Safety Report 5689754-4 (Version None)
Quarter: 2008Q1

REPORT INFORMATION
  Report Type: 
  Country: None (occurrence: None)
  Receive Date: 20080328
  Receipt Date: 20080222
  Transmission Date: 20080703
  Serious: Yes (Other)
  Sender: FDA-Public Use
  Company Number: IMP-03562-2008

PATIENT
  Sex: Male
  Weight: 22.6799 kg

DRUGS (3)
  1. BUDEPRION 300 MG (NOT SPECIFIED) [Suspect]
     Indication: ANXIETY
     Dosage: (300 MG QD ORAL)
     Route: 048
     Dates: start: 20080112, end: 20080117
  2. BUPROPION HYDROCHLORIDE [Suspect]
     Indication: ANXIETY
     Dosage: (100 MG QD)
  3. FOCALIN [Concomitant]

REACTIONS (3)
  - DRUG DISPENSING ERROR [None]
  - FORMICATION [None]
  - HALLUCINATION [None]
